FAERS Safety Report 23634494 (Version 2)
Quarter: 2024Q2

REPORT INFORMATION
  Report Type: Spontaneous
  Country: US (occurrence: US)
  Receive Date: 20240315
  Receipt Date: 20240402
  Transmission Date: 20240715
  Serious: No
  Sender: FDA-Public Use
  Company Number: US-ABBVIE-5676849

PATIENT
  Age: 54 Year
  Sex: Female
  Weight: 69 kg

DRUGS (3)
  1. ARMOUR THYROID [Suspect]
     Active Substance: THYROID, PORCINE
     Indication: Hypothyroidism
     Dosage: FORM STRENGTH: 30 MILLIGRAM?START DATE TEXT: MANY YEARS AGO
     Route: 060
     Dates: end: 20240326
  2. ARMOUR THYROID [Suspect]
     Active Substance: THYROID, PORCINE
     Indication: Hypothyroidism
     Dosage: FORM STRENGTH: 30 MILLIGRAM
     Route: 060
     Dates: start: 20240328
  3. ESTRADIOL [Concomitant]
     Active Substance: ESTRADIOL
     Indication: Hormone replacement therapy

REACTIONS (10)
  - Urticaria [Not Recovered/Not Resolved]
  - Dry mouth [Not Recovered/Not Resolved]
  - Adverse drug reaction [Not Recovered/Not Resolved]
  - Lip pruritus [Unknown]
  - Erythema [Unknown]
  - Circumoral swelling [Unknown]
  - Hypoaesthesia [Not Recovered/Not Resolved]
  - Incorrect route of product administration [Not Recovered/Not Resolved]
  - Heart rate irregular [Not Recovered/Not Resolved]
  - Lip scab [Not Recovered/Not Resolved]

NARRATIVE: CASE EVENT DATE: 20240101
